FAERS Safety Report 7240834-1 (Version None)
Quarter: 2011Q1

REPORT INFORMATION
  Report Type: 
  Country: None (occurrence: None)
  Receive Date: 20110124
  Receipt Date: 20110114
  Transmission Date: 20110831
  Serious: Yes (Other)
  Sender: FDA-Public Use
  Company Number: CA-JNJFOC-20100604889

PATIENT
  Sex: Female
  Weight: 42.64 kg

DRUGS (2)
  1. REMICADE [Suspect]
     Indication: RHEUMATOID ARTHRITIS
     Dosage: EVERY 4-6 WEEKS
     Route: 042
  2. AMOXYL [Concomitant]

REACTIONS (5)
  - INFUSION RELATED REACTION [None]
  - PYREXIA [None]
  - BLOOD PRESSURE INCREASED [None]
  - HEART RATE INCREASED [None]
  - CHILLS [None]
